FAERS Safety Report 25941693 (Version 1)
Quarter: 2025Q4

REPORT INFORMATION
  Report Type: Spontaneous
  Country: US (occurrence: US)
  Receive Date: 20251020
  Receipt Date: 20251020
  Transmission Date: 20260118
  Serious: No
  Sender: MYLAN
  Company Number: US-MYLANLABS-2025M1085324

PATIENT
  Sex: Female
  Weight: 96.16 kg

DRUGS (1)
  1. BREYNA [Suspect]
     Active Substance: BUDESONIDE\FORMOTEROL FUMARATE
     Indication: Bronchiolitis
     Dosage: 320 PER 9 MICROGRAM, BID (INHALE 2 PUFFS BY MOUTH TWICE DAILY)
     Dates: start: 20250922

REACTIONS (4)
  - Wrong technique in product usage process [Unknown]
  - Device delivery system issue [Unknown]
  - Device mechanical issue [Unknown]
  - Off label use [Unknown]

NARRATIVE: CASE EVENT DATE: 20250101
